FAERS Safety Report 5128345-0 (Version None)
Quarter: 2006Q4

REPORT INFORMATION
  Report Type: 
  Country: None (occurrence: None)
  Receive Date: 20061011
  Receipt Date: 20060928
  Transmission Date: 20070319
  Serious: Yes (Death)
  Sender: FDA-Public Use
  Company Number: MEDI-0004971

PATIENT
  Sex: Male

DRUGS (1)
  1. SYNAGIS [Suspect]
     Dosage: INTRAMUSCULAR
     Route: 030
     Dates: start: 20031230, end: 20031230

REACTIONS (1)
  - PNEUMONITIS [None]
